FAERS Safety Report 7750874 (Version 4)
Quarter: 2013Q3

REPORT INFORMATION
  Report Type: Report from Study
  Country: NL (occurrence: NL)
  Receive Date: 20110106
  Receipt Date: 20130923
  Transmission Date: 20140515
  Serious: Yes (Death, Hospitalization)
  Sender: FDA-Public Use
  Company Number: NL-MEDIMMUNE-MEDI-0012122

PATIENT
  Age: 8 Month
  Sex: Male
  Weight: 6.9 kg

DRUGS (4)
  1. SYNAGIS [Suspect]
     Indication: ANTIVIRAL PROPHYLAXIS
     Route: 030
     Dates: start: 20100902, end: 20101126
  2. SYNAGIS [Suspect]
     Indication: ANTIVIRAL PROPHYLAXIS
     Route: 030
     Dates: start: 20101224
  3. SYNAGIS [Suspect]
     Indication: ANTIVIRAL PROPHYLAXIS
     Route: 030
     Dates: start: 20110218, end: 201103
  4. BACTRIM [Concomitant]
     Dates: start: 2010

REACTIONS (3)
  - Respiratory tract infection [Fatal]
  - Dyspnoea [Recovered/Resolved]
  - Dysphagia [Fatal]
